FAERS Safety Report 8972542 (Version 1)
Quarter: 2012Q4

REPORT INFORMATION
  Report Type: Spontaneous
  Country: US (occurrence: None)
  Receive Date: 20121217
  Receipt Date: 20121217
  Transmission Date: 20130627
  Serious: Yes (Other)
  Sender: FDA-Public Use
  Company Number: None

PATIENT
  Age: 31 Year
  Sex: Female
  Weight: 79.38 kg

DRUGS (1)
  1. TAMIFLU 75MG GENENTECH [Suspect]
     Indication: INFLUENZA
     Dosage: 1-75mg capsule 2 times po
     Route: 048
     Dates: start: 20121212, end: 20121213

REACTIONS (2)
  - Renal pain [None]
  - Abdominal pain upper [None]
